FAERS Safety Report 12616138 (Version 1)
Quarter: 2016Q3

REPORT INFORMATION
  Report Type: Spontaneous
  Country: US (occurrence: US)
  Receive Date: 20160802
  Receipt Date: 20160802
  Transmission Date: 20161109
  Serious: Yes (Death, Other)
  Sender: FDA-Public Use
  Company Number: US-ALEXION PHARMACEUTICALS INC.-A201605417

PATIENT
  Age: 61 Year
  Sex: Male

DRUGS (7)
  1. IVIGLOB EX [Concomitant]
     Active Substance: HUMAN IMMUNOGLOBULIN G
     Indication: TRANSPLANT REJECTION
  2. SOLIRIS [Suspect]
     Active Substance: ECULIZUMAB
     Indication: OFF LABEL USE
     Dosage: 600 MG, SINGLE
     Route: 042
  3. IVIGLOB EX [Concomitant]
     Active Substance: HUMAN IMMUNOGLOBULIN G
     Indication: COMPLICATIONS OF TRANSPLANTED LUNG
     Route: 042
  4. SOLIRIS [Suspect]
     Active Substance: ECULIZUMAB
     Indication: LUNG TRANSPLANT
     Dosage: 900 MG, SINGLE
     Route: 042
     Dates: start: 20160718, end: 20160718
  5. SOLIRIS [Suspect]
     Active Substance: ECULIZUMAB
     Dosage: 600 MG, SINGLE
     Route: 042
  6. CARFILZOMIB [Concomitant]
     Active Substance: CARFILZOMIB
     Indication: COMPLICATIONS OF TRANSPLANTED LUNG
     Route: 065
  7. CARFILZOMIB [Concomitant]
     Active Substance: CARFILZOMIB
     Indication: TRANSPLANT REJECTION

REACTIONS (3)
  - Transplant rejection [Fatal]
  - Off label use [Unknown]
  - Respiratory failure [Fatal]

NARRATIVE: CASE EVENT DATE: 20160718
